FAERS Safety Report 8095805-2 (Version None)
Quarter: 2012Q1

REPORT INFORMATION
  Report Type: 
  Country: None (occurrence: None)
  Receive Date: 20120129
  Receipt Date: 20111214
  Transmission Date: 20120608
  Serious: No
  Sender: FDA-Public Use
  Company Number: US-ABBOTT-11P-163-0883312-00

PATIENT
  Sex: Female

DRUGS (2)
  1. HUMIRA [Suspect]
     Indication: PSORIASIS
     Dates: start: 20080101, end: 20110901
  2. UNKNOWN CREAM [Concomitant]
     Indication: PSORIASIS

REACTIONS (2)
  - DRY SKIN [None]
  - PAIN OF SKIN [None]
